FAERS Safety Report 6120622-X (Version None)
Quarter: 2009Q1

REPORT INFORMATION
  Report Type: 
  Country: None (occurrence: None)
  Receive Date: 20090312
  Receipt Date: 20090312
  Transmission Date: 20090719
  Serious: Yes (Other)
  Sender: FDA-Public Use
  Company Number: None

PATIENT
  Sex: Male
  Weight: 80.7403 kg

DRUGS (1)
  1. AMBIEN [Suspect]
     Indication: SLEEP DISORDER
     Dosage: 1.5- 2.5 MILLIGRAMS TWICE A NIGHT PO
     Route: 048
     Dates: start: 20020101, end: 20090205

REACTIONS (13)
  - ASTHENIA [None]
  - BEDRIDDEN [None]
  - DEPRESSION [None]
  - DISTURBANCE IN ATTENTION [None]
  - DRUG HYPERSENSITIVITY [None]
  - EPSTEIN-BARR VIRUS INFECTION [None]
  - HYPERHIDROSIS [None]
  - INFLUENZA [None]
  - MALAISE [None]
  - MEMORY IMPAIRMENT [None]
  - NASOPHARYNGITIS [None]
  - STRESS [None]
  - TREATMENT NONCOMPLIANCE [None]
